FAERS Safety Report 4284542-8 (Version None)
Quarter: 2004Q1

REPORT INFORMATION
  Report Type: 
  Country: None (occurrence: None)
  Receive Date: 20040130
  Receipt Date: 20040115
  Transmission Date: 20041129
  Serious: Yes (Hospitalization)
  Sender: FDA-Public Use
  Company Number: B01200301905

PATIENT
  Age: 51 Year
  Sex: Female

DRUGS (3)
  1. OXALIPLATIN - SOLUTION - 85 MG/M2 [Suspect]
     Indication: COLORECTAL CANCER
     Dosage: 85 MG/M2 Q3W
     Route: 042
     Dates: start: 20030701, end: 20030701
  2. FLUOROURACIL [Suspect]
     Dosage: 100 MG/M2 CONT
     Route: 042
     Dates: start: 20030422, end: 20030716
  3. FENTANYL [Concomitant]

REACTIONS (16)
  - ABDOMINAL PAIN LOWER [None]
  - ADHESION [None]
  - ASCITES [None]
  - BLOOD SODIUM DECREASED [None]
  - GASTROINTESTINAL NECROSIS [None]
  - INTESTINAL OBSTRUCTION [None]
  - MASS [None]
  - METASTASES TO LUNG [None]
  - MUCOSAL EROSION [None]
  - NAUSEA [None]
  - NECROSIS ISCHAEMIC [None]
  - NEUTROPHIL COUNT ABNORMAL [None]
  - PELVIC ABSCESS [None]
  - RADIATION INJURY [None]
  - VOMITING [None]
  - WHITE BLOOD CELL COUNT INCREASED [None]
